FAERS Safety Report 7517043-1 (Version None)
Quarter: 2011Q2

REPORT INFORMATION
  Report Type: 
  Country: None (occurrence: None)
  Receive Date: 20110601
  Receipt Date: 20110517
  Transmission Date: 20111010
  Serious: Yes (Other)
  Sender: FDA-Public Use
  Company Number: US-JNJFOC-20110309747

PATIENT
  Sex: Female
  Weight: 59.88 kg

DRUGS (6)
  1. REMICADE [Suspect]
     Route: 042
     Dates: start: 20110126
  2. AZATHIOPRINE [Concomitant]
     Route: 048
     Dates: start: 20110105
  3. PROMETHAZINE HCL [Concomitant]
     Indication: NAUSEA
     Route: 048
     Dates: start: 20101006
  4. REMICADE [Suspect]
     Indication: CROHN'S DISEASE
     Route: 042
     Dates: start: 20101215
  5. MINOCYCLINE HCL [Concomitant]
     Route: 048
     Dates: start: 20110215
  6. REMICADE [Suspect]
     Route: 042
     Dates: start: 20101229

REACTIONS (17)
  - CROHN'S DISEASE [None]
  - MAJOR DEPRESSION [None]
  - VISUAL IMPAIRMENT [None]
  - NOCTURIA [None]
  - PALPITATIONS [None]
  - POLLAKIURIA [None]
  - ABDOMINAL ADHESIONS [None]
  - POOR VENOUS ACCESS [None]
  - CHEST PAIN [None]
  - TEMPERATURE INTOLERANCE [None]
  - RASH [None]
  - INCREASED TENDENCY TO BRUISE [None]
  - DYSPNOEA EXERTIONAL [None]
  - SUICIDAL IDEATION [None]
  - OEDEMA PERIPHERAL [None]
  - PAIN [None]
  - HOT FLUSH [None]
